FAERS Safety Report 9106143 (Version 2)
Quarter: 2013Q1

REPORT INFORMATION
  Report Type: Spontaneous
  Country: US (occurrence: US)
  Receive Date: 20130220
  Receipt Date: 20130326
  Transmission Date: 20140127
  Serious: No
  Sender: FDA-Public Use
  Company Number: US-ASTRAZENECA-2013SE03396

PATIENT
  Age: 41 Year
  Sex: Female
  Weight: 81.2 kg

DRUGS (4)
  1. NEXIUM [Suspect]
     Indication: GASTROOESOPHAGEAL REFLUX DISEASE
     Route: 048
     Dates: start: 1998, end: 201212
  2. PROTONIX [Suspect]
     Indication: GASTROOESOPHAGEAL REFLUX DISEASE
     Route: 065
     Dates: start: 201212
  3. DIOVAN [Concomitant]
     Indication: HYPERTENSION
  4. ROLAIDS [Concomitant]

REACTIONS (15)
  - Amnesia [Unknown]
  - Burning sensation [Unknown]
  - Concussion [Unknown]
  - Cough [Unknown]
  - Dyspepsia [Unknown]
  - Head injury [Unknown]
  - Hypertension [Unknown]
  - Ligament sprain [Unknown]
  - Regurgitation [Unknown]
  - Road traffic accident [Unknown]
  - Sleep disorder [Unknown]
  - Eructation [Unknown]
  - Flatulence [Unknown]
  - Malaise [Unknown]
  - Drug dose omission [Unknown]
